FAERS Safety Report 10304157 (Version 2)
Quarter: 2014Q4

REPORT INFORMATION
  Report Type: Spontaneous
  Country: IT (occurrence: IT)
  Receive Date: 20140714
  Receipt Date: 20141105
  Transmission Date: 20150528
  Serious: Yes (Hospitalization)
  Sender: FDA-Public Use
  Company Number: IT-B.I. PHARMACEUTICALS,INC./RIDGEFIELD-2014-BI-31574IT

PATIENT
  Age: 67 Year
  Sex: Female

DRUGS (4)
  1. LASIX [Concomitant]
     Active Substance: FUROSEMIDE
     Indication: HYPERTENSION
     Route: 048
  2. KANRENOL [Concomitant]
     Active Substance: CANRENOATE POTASSIUM
     Indication: CARDIAC FAILURE
     Route: 048
  3. FOSINOPRIL TEVA [Suspect]
     Active Substance: FOSINOPRIL
     Indication: HYPERTENSION
     Route: 048
     Dates: start: 20140508, end: 20140508
  4. TRADJENTA [Suspect]
     Active Substance: LINAGLIPTIN
     Indication: DIABETIC NEPHROPATHY
     Dosage: FORMULATION: FILM-COATED TABLET
     Route: 048
     Dates: start: 20140608, end: 20140610

REACTIONS (4)
  - Localised oedema [Not Recovered/Not Resolved]
  - Erythema [Not Recovered/Not Resolved]
  - Rash maculo-papular [Not Recovered/Not Resolved]
  - Face oedema [Not Recovered/Not Resolved]

NARRATIVE: CASE EVENT DATE: 20140610
